FAERS Safety Report 11042279 (Version 1)
Quarter: 2015Q2

REPORT INFORMATION
  Report Type: Spontaneous
  Country: US (occurrence: US)
  Receive Date: 20150416
  Receipt Date: 20150416
  Transmission Date: 20150821
  Serious: Yes (Hospitalization)
  Sender: FDA-Public Use
  Company Number: US-CELGENEUS-USA-2015041345

PATIENT
  Age: 82 Year
  Sex: Female
  Weight: 62.2 kg

DRUGS (1)
  1. THALOMID [Suspect]
     Active Substance: THALIDOMIDE
     Indication: PLASMA CELL MYELOMA
     Dosage: 100 MILLIGRAM
     Route: 048
     Dates: start: 20120425

REACTIONS (5)
  - Urinary tract infection [Unknown]
  - Osteomyelitis [Unknown]
  - Vomiting [Unknown]
  - Dehydration [Unknown]
  - Constipation [Unknown]

NARRATIVE: CASE EVENT DATE: 201503
